FAERS Safety Report 5394328-9 (Version None)
Quarter: 2007Q3

REPORT INFORMATION
  Report Type: 
  Country: None (occurrence: None)
  Receive Date: 20070723
  Receipt Date: 20070524
  Transmission Date: 20080115
  Serious: No
  Sender: FDA-Public Use
  Company Number: A0652835A

PATIENT
  Sex: Female

DRUGS (9)
  1. AVANDIA [Suspect]
     Dosage: 4MG TWICE PER DAY
     Route: 048
     Dates: end: 20070522
  2. PLAVIX [Concomitant]
  3. SIMVASTATIN [Concomitant]
  4. GLIMEPIRIDE [Concomitant]
  5. RAMIPRIL [Concomitant]
  6. LEVOTHYROXINE SODIUM [Concomitant]
  7. METOPROLOL TARTRATE [Concomitant]
  8. ECOTRIN [Concomitant]
  9. TUMS [Concomitant]

REACTIONS (2)
  - DIZZINESS [None]
  - PALPITATIONS [None]
